FAERS Safety Report 12351553 (Version 1)
Quarter: 2016Q2

REPORT INFORMATION
  Report Type: Report from Study
  Country: MX (occurrence: MX)
  Receive Date: 20160510
  Receipt Date: 20160510
  Transmission Date: 20160815
  Serious: Yes (Other)
  Sender: FDA-Public Use
  Company Number: PHHY2016MX063259

PATIENT

DRUGS (1)
  1. CO-DIOVAN [Suspect]
     Active Substance: HYDROCHLOROTHIAZIDE\VALSARTAN
     Indication: HYPERTENSION
     Dosage: 0.5 DF, QD (HYDROCHLOROTHIAZIDE 25 MG, VALSARTAN 160 MG) (DAILY AT 6 AM)
     Route: 065

REACTIONS (2)
  - Wrong technique in product usage process [Unknown]
  - Neoplasm malignant [Unknown]
